FAERS Safety Report 22186561 (Version 1)
Quarter: 2023Q2

REPORT INFORMATION
  Report Type: Spontaneous
  Country: FR (occurrence: None)
  Receive Date: 20230407
  Receipt Date: 20230407
  Transmission Date: 20230721
  Serious: Yes (Other)
  Sender: FDA-Public Use
  Company Number: 2023A064301

PATIENT
  Age: 44 Year
  Sex: Female

DRUGS (3)
  1. ESOMEPRAZOLE [Suspect]
     Active Substance: ESOMEPRAZOLE
     Indication: Ulcerative gastritis
     Dosage: 40 MILLIGRAM, 1/DAY
     Route: 048
     Dates: start: 20221019, end: 20221127
  2. ESOMEPRAZOLE [Suspect]
     Active Substance: ESOMEPRAZOLE
     Indication: Ulcerative gastritis
     Dosage: 80 MILLIGRAM, 1/DAY
     Route: 048
     Dates: start: 20221128, end: 20221205
  3. TRIMEBUTINE MALEATE [Suspect]
     Active Substance: TRIMEBUTINE MALEATE
     Indication: Ulcerative gastritis
     Dosage: UNK
     Route: 048
     Dates: start: 20221019, end: 20221205

REACTIONS (1)
  - Cholestatic liver injury [Recovered/Resolved]

NARRATIVE: CASE EVENT DATE: 20221201
